FAERS Safety Report 20654013 (Version 1)
Quarter: 2022Q1

REPORT INFORMATION
  Report Type: Spontaneous
  Country: US (occurrence: None)
  Receive Date: 20220329
  Receipt Date: 20220329
  Transmission Date: 20220423
  Serious: Yes (Other)
  Sender: FDA-Public Use
  Company Number: None

PATIENT
  Age: 36 Year
  Sex: Male
  Weight: 87.75 kg

DRUGS (1)
  1. SUBOXONE [Suspect]
     Active Substance: BUPRENORPHINE HYDROCHLORIDE\NALOXONE HYDROCHLORIDE
     Indication: Drug dependence
     Dosage: OTHER QUANTITY : 1 SUBLINGUAL FILM;?FREQUENCY : TWICE A DAY;?
     Route: 060
     Dates: start: 20101001, end: 20220328

REACTIONS (1)
  - Tooth disorder [None]

NARRATIVE: CASE EVENT DATE: 20141001
